FAERS Safety Report 5953915-7 (Version None)
Quarter: 2008Q4

REPORT INFORMATION
  Report Type: 
  Country: None (occurrence: None)
  Receive Date: 20081114
  Receipt Date: 20081103
  Transmission Date: 20090506
  Serious: Yes (Hospitalization)
  Sender: FDA-Public Use
  Company Number: FR-PFIZER INC-2008093273

PATIENT
  Age: 61 Year
  Sex: Female

DRUGS (1)
  1. SUTENT [Suspect]
     Dosage: DAILY DOSE:50MG

REACTIONS (3)
  - CONSTIPATION [None]
  - RENAL IMPAIRMENT [None]
  - VOMITING [None]
